FAERS Safety Report 17769746 (Version 1)
Quarter: 2020Q2

REPORT INFORMATION
  Report Type: Spontaneous
  Country: US (occurrence: US)
  Receive Date: 20200511
  Receipt Date: 20200511
  Transmission Date: 20200714
  Serious: Yes (Hospitalization)
  Sender: FDA-Public Use
  Company Number: None

PATIENT
  Age: 67 Year
  Sex: Male

DRUGS (8)
  1. NIACIN. [Concomitant]
     Active Substance: NIACIN
  2. VENLAFAXINE ER 75MG [Concomitant]
     Active Substance: VENLAFAXINE HYDROCHLORIDE
     Dates: start: 20190330
  3. VITMAIN B COMPLEX [Concomitant]
  4. ERLEADA [Suspect]
     Active Substance: APALUTAMIDE
     Indication: PROSTATE CANCER METASTATIC
     Route: 048
     Dates: start: 20200430, end: 20200502
  5. CHLORTHALIDONE 25MG [Concomitant]
     Active Substance: CHLORTHALIDONE
     Dates: start: 20200211
  6. MIRTAZIPINE 30MG [Concomitant]
     Dates: start: 20190315
  7. TRAMADOL 50MG [Concomitant]
     Active Substance: TRAMADOL
     Dates: start: 20190123
  8. IRON 325 [Concomitant]

REACTIONS (3)
  - Arthralgia [None]
  - Myalgia [None]
  - Diarrhoea [None]

NARRATIVE: CASE EVENT DATE: 20200502
